FAERS Safety Report 25211252 (Version 1)
Quarter: 2025Q2

REPORT INFORMATION
  Report Type: Spontaneous
  Country: US (occurrence: US)
  Receive Date: 20250417
  Receipt Date: 20250417
  Transmission Date: 20250717
  Serious: No
  Sender: BEIGENE
  Company Number: US-BEIGENE-BGN-2025-005704

PATIENT
  Age: 83 Year

DRUGS (2)
  1. BRUKINSA [Interacting]
     Active Substance: ZANUBRUTINIB
     Indication: Chronic lymphocytic leukaemia
     Dosage: 160 MILLIGRAM, Q12H
  2. PRIMIDONE [Interacting]
     Active Substance: PRIMIDONE
     Indication: Essential tremor
     Dosage: 50 MILLIGRAM, BID

REACTIONS (2)
  - White blood cell count increased [Unknown]
  - Drug interaction [Unknown]
